FAERS Safety Report 7207463-7 (Version None)
Quarter: 2011Q1

REPORT INFORMATION
  Report Type: 
  Country: None (occurrence: None)
  Receive Date: 20110103
  Receipt Date: 20101224
  Transmission Date: 20110831
  Serious: Yes (Hospitalization, Other)
  Sender: FDA-Public Use
  Company Number: PHHO2010IT08355

PATIENT
  Sex: Male
  Weight: 41.6 kg

DRUGS (9)
  1. ACZ885 [Suspect]
     Dosage: 4 MG/KG
     Route: 058
     Dates: start: 20100126, end: 20100323
  2. ACZ885 [Suspect]
     Dosage: UNK
     Dates: start: 20100720
  3. ACZ885 [Suspect]
     Dosage: UNK
     Dates: start: 20101018
  4. ACZ885 [Suspect]
     Dosage: UNK
     Dates: start: 20101220
  5. ACZ885 [Suspect]
     Dosage: UNK
     Dates: start: 20100920
  6. ACZ885 [Suspect]
     Dosage: UNK
     Dates: start: 20101122
  7. ACZ885 [Suspect]
     Dosage: UNK
     Dates: start: 20100622
  8. ACZ885 [Suspect]
     Indication: JUVENILE ARTHRITIS
     Dosage: CODE NOT BROKEN
     Route: 058
     Dates: start: 20100525
  9. ACZ885 [Suspect]
     Dosage: UNK
     Dates: start: 20100820

REACTIONS (7)
  - HEADACHE [None]
  - ALANINE AMINOTRANSFERASE INCREASED [None]
  - PLATELET COUNT DECREASED [None]
  - HAPTOGLOBIN DECREASED [None]
  - PHARYNGITIS [None]
  - WHITE BLOOD CELL COUNT DECREASED [None]
  - ASPARTATE AMINOTRANSFERASE INCREASED [None]
